FAERS Safety Report 4827185-7 (Version None)
Quarter: 2005Q4

REPORT INFORMATION
  Report Type: 
  Country: None (occurrence: None)
  Receive Date: 20051014
  Receipt Date: 20050901
  Transmission Date: 20060501
  Serious: No
  Sender: FDA-Public Use
  Company Number: 2005SP002604

PATIENT
  Age: 66 Year
  Sex: Male
  Weight: 103.4201 kg

DRUGS (3)
  1. LUNESTA [Suspect]
     Dosage: 2 MG;HS; ORAL
     Route: 048
     Dates: start: 20050801, end: 20050901
  2. ATORVASTATIN CALCIUM [Concomitant]
  3. LOTENSIN [Concomitant]

REACTIONS (3)
  - DRUG INEFFECTIVE [None]
  - FATIGUE [None]
  - INSOMNIA [None]
